FAERS Safety Report 23753145 (Version 1)
Quarter: 2024Q2

REPORT INFORMATION
  Report Type: Spontaneous
  Country: CN (occurrence: CN)
  Receive Date: 20240417
  Receipt Date: 20240417
  Transmission Date: 20240716
  Serious: Yes (Hospitalization, Other)
  Sender: FDA-Public Use
  Company Number: CN-ABBVIE-5721556

PATIENT
  Sex: Male
  Weight: 59 kg

DRUGS (1)
  1. VENETOCLAX [Suspect]
     Active Substance: VENETOCLAX
     Indication: Acute myeloid leukaemia
     Dosage: 0.2 GRAM
     Route: 048
     Dates: start: 20240329, end: 20240405

REACTIONS (2)
  - Acute myeloid leukaemia [Unknown]
  - Haematochezia [Recovering/Resolving]

NARRATIVE: CASE EVENT DATE: 20240101
